FAERS Safety Report 9972264 (Version 2)
Quarter: 2014Q1

REPORT INFORMATION
  Report Type: Report from Study
  Country: US (occurrence: US)
  Receive Date: 20140306
  Receipt Date: 20140306
  Transmission Date: 20141002
  Serious: No
  Sender: FDA-Public Use
  Company Number: US-ABBVIE-12P-163-0990271-00

PATIENT
  Sex: Female

DRUGS (3)
  1. HUMIRA [Suspect]
     Indication: PSORIASIS
     Dates: start: 201107, end: 201202
  2. HUMIRA [Suspect]
     Dates: start: 201305
  3. HUMIRA [Suspect]
     Indication: PSORIASIS
     Dates: start: 201305, end: 201305

REACTIONS (3)
  - Injection site pain [Recovered/Resolved]
  - Streptococcus test positive [Recovered/Resolved]
  - Psoriasis [Not Recovered/Not Resolved]
